FAERS Safety Report 4397675-2 (Version None)
Quarter: 2004Q3

REPORT INFORMATION
  Report Type: 
  Country: None (occurrence: None)
  Receive Date: 20040713
  Receipt Date: 20040628
  Transmission Date: 20050211
  Serious: Yes (Other)
  Sender: FDA-Public Use
  Company Number: 2004-DE-03539GD

PATIENT
  Sex: Male

DRUGS (1)
  1. IPRATROPIUM BROMIDE [Suspect]
     Indication: FIBRINOUS BRONCHITIS

REACTIONS (6)
  - BRONCHIAL OBSTRUCTION [None]
  - COLLAPSE OF LUNG [None]
  - DRUG INEFFECTIVE [None]
  - HEPATIC CONGESTION [None]
  - PRODUCTIVE COUGH [None]
  - VENOUS PRESSURE INCREASED [None]
